FAERS Safety Report 8326077-9 (Version None)
Quarter: 2012Q2

REPORT INFORMATION
  Report Type: 
  Country: None (occurrence: None)
  Receive Date: 20120501
  Receipt Date: 20120424
  Transmission Date: 20120825
  Serious: Yes (Death)
  Sender: FDA-Public Use
  Company Number: JP-GLAXOSMITHKLINE-B0795407A

PATIENT
  Sex: Male

DRUGS (12)
  1. SCOPOLAMINE [Concomitant]
     Dosage: 2IUAX PER DAY
     Route: 048
  2. REBAMIPIDE [Concomitant]
     Dosage: 3IUAX PER DAY
     Route: 048
  3. VOLTAREN [Concomitant]
     Dosage: 1IUAX PER DAY
     Route: 048
  4. LEXAPRO [Concomitant]
     Dosage: 2IUAX PER DAY
     Route: 048
     Dates: end: 20120302
  5. ROZEREM [Concomitant]
     Dosage: 1IUAX PER DAY
     Route: 048
  6. VALPROATE SODIUM [Suspect]
     Indication: PRODUCT USED FOR UNKNOWN INDICATION
     Route: 048
  7. TETRAMIDE [Concomitant]
     Dosage: 1IUAX PER DAY
     Route: 048
  8. LAC-B [Concomitant]
     Dosage: 3G PER DAY
     Route: 048
  9. LAMICTAL [Suspect]
     Indication: PRODUCT USED FOR UNKNOWN INDICATION
     Dosage: 25MG PER DAY
     Route: 048
     Dates: end: 20120302
  10. ACETAMINOPHEN [Concomitant]
     Dosage: 1IUAX PER DAY
     Route: 048
  11. AMOXAPINE [Concomitant]
     Dosage: 4IUAX PER DAY
     Route: 048
  12. VALERIN (JAPAN) [Concomitant]
     Dosage: 3IUAX PER DAY
     Route: 048

REACTIONS (16)
  - WHITE BLOOD CELL COUNT INCREASED [None]
  - BLOOD CREATINE PHOSPHOKINASE INCREASED [None]
  - PYREXIA [None]
  - CONJUNCTIVAL HYPERAEMIA [None]
  - MULTI-ORGAN FAILURE [None]
  - ALANINE AMINOTRANSFERASE INCREASED [None]
  - GAMMA-GLUTAMYLTRANSFERASE INCREASED [None]
  - BLOOD ALKALINE PHOSPHATASE INCREASED [None]
  - BLOOD LACTATE DEHYDROGENASE INCREASED [None]
  - ASPARTATE AMINOTRANSFERASE INCREASED [None]
  - GENERALISED ERYTHEMA [None]
  - TOXIC EPIDERMAL NECROLYSIS [None]
  - PAPULE [None]
  - BLOOD UREA INCREASED [None]
  - BLOOD CREATINE INCREASED [None]
  - C-REACTIVE PROTEIN INCREASED [None]
